FAERS Safety Report 5683457-8 (Version None)
Quarter: 2008Q1

REPORT INFORMATION
  Report Type: 
  Country: None (occurrence: None)
  Receive Date: 20080326
  Receipt Date: 20080312
  Transmission Date: 20080703
  Serious: No
  Sender: FDA-Public Use
  Company Number: TPA2008A00312

PATIENT
  Sex: Male

DRUGS (3)
  1. ACTOS [Suspect]
     Dosage: 1 IN 1 D AN HOUR BEFORE EATING, PER ORAL
     Route: 048
  2. METFORMIN HCL [Concomitant]
  3. JANUVIA (ANTI-DIABETICS) [Concomitant]

REACTIONS (1)
  - DRUG DOSE OMISSION [None]
